FAERS Safety Report 16206349 (Version 1)
Quarter: 2019Q2

REPORT INFORMATION
  Report Type: Spontaneous
  Country: NL (occurrence: NL)
  Receive Date: 20190417
  Receipt Date: 20190417
  Transmission Date: 20190711
  Serious: Yes (Hospitalization)
  Sender: FDA-Public Use
  Company Number: NL-TEVA-2019-NL-1038002

PATIENT
  Age: 63 Year
  Sex: Male
  Weight: 75.9 kg

DRUGS (10)
  1. TIOTROPIUM 2,5 UG [Concomitant]
     Dosage: 5 MICROGRAM DAILY; 1X DAY 2 INHALATIONS
  2. PARACETAMOL 1000 MG [Concomitant]
     Dosage: 4X DAAGS
  3. NADROPARINE 2850 IE [Concomitant]
     Dosage: 1 DOSAGE FORMS DAILY; 1X DAAGS
  4. CALCIUMCARBONAAT/COLECALCIFEROL 500 MG/ 800 IE [Concomitant]
     Dosage: 1 DOSAGE FORMS DAILY; AN
  5. COTRIMOXAZOL TABLET, 80/400 MG (MILLIGRAM ) [Suspect]
     Active Substance: SULFAMETHOXAZOLE\TRIMETHOPRIM
     Indication: ANTIBIOTIC PROPHYLAXIS
     Dosage: 1 DOSAGE FORMS DAILY; 1 MAAL DAAGS 1
     Dates: start: 20190204, end: 20190310
  6. PANTOPRAZOLE SODIUM. [Concomitant]
     Active Substance: PANTOPRAZOLE SODIUM
     Dosage: 1 DOSAGE FORMS DAILY; 1X DAAGS
  7. PREDNISOLON 60 MG [Concomitant]
     Dosage: 1 DOSAGE FORMS DAILY; 1X DAAGS
  8. DICLOFENAC NATRIUM 50 MG [Concomitant]
     Dosage: ZN BIJ PIJN
  9. OXAZEPAM 10 MG [Concomitant]
     Dosage: ZN 3X DAAGS
  10. NYSTATINE 100000 EENHEDEN/ ML [Concomitant]
     Dosage: 6 ML DAILY; 6 ML PER DAG

REACTIONS (3)
  - Headache [Recovered/Resolved]
  - Pain in extremity [Recovered/Resolved]
  - Burning sensation [Recovered/Resolved]

NARRATIVE: CASE EVENT DATE: 20190218
